FAERS Safety Report 6534360-2 (Version None)
Quarter: 2010Q1

REPORT INFORMATION
  Report Type: 
  Country: None (occurrence: None)
  Receive Date: 20100108
  Receipt Date: 20100108
  Transmission Date: 20100710
  Serious: Yes (Hospitalization)
  Sender: FDA-Public Use
  Company Number: None

PATIENT
  Sex: Female
  Weight: 70 kg

DRUGS (2)
  1. CISPLATIN [Suspect]
     Dosage: 127 MG
     Dates: end: 20091218
  2. PACLITAXEL [Suspect]
     Dosage: 228 MG
     Dates: end: 20091217

REACTIONS (18)
  - ACIDOSIS [None]
  - ACUTE MYOCARDIAL INFARCTION [None]
  - AKINESIA [None]
  - ANXIETY [None]
  - ASTHENIA [None]
  - CATHETER SITE CELLULITIS [None]
  - CORONARY ARTERY DISEASE [None]
  - DEHYDRATION [None]
  - DIZZINESS [None]
  - ELECTROCARDIOGRAM ABNORMAL [None]
  - FALL [None]
  - FATIGUE [None]
  - HYPOKALAEMIA [None]
  - HYPOTENSION [None]
  - NEUTROPHIL COUNT DECREASED [None]
  - SEPSIS [None]
  - TACHYPNOEA [None]
  - VOMITING [None]
